FAERS Safety Report 16047104 (Version 3)
Quarter: 2019Q3

REPORT INFORMATION
  Report Type: Spontaneous
  Country: US (occurrence: US)
  Receive Date: 20190307
  Receipt Date: 20190910
  Transmission Date: 20191004
  Serious: Yes (Other)
  Sender: FDA-Public Use
  Company Number: US-COOPERSURGICAL, INC.-US-2019CPS000518

PATIENT
  Age: 41 Year
  Sex: Female
  Weight: 65.31 kg

DRUGS (1)
  1. PARAGARD T 380A [Suspect]
     Active Substance: COPPER
     Indication: CONTRACEPTION
     Dosage: UNK
     Route: 015
     Dates: start: 201412

REACTIONS (10)
  - Polymenorrhoea [Unknown]
  - Discomfort [Unknown]
  - Embedded device [Not Recovered/Not Resolved]
  - Complication of device removal [Not Recovered/Not Resolved]
  - Muscle spasms [Recovered/Resolved]
  - Acne cystic [Unknown]
  - Foreign body in reproductive tract [Not Recovered/Not Resolved]
  - Dysmenorrhoea [Unknown]
  - Device breakage [Not Recovered/Not Resolved]
  - Menorrhagia [Unknown]

NARRATIVE: CASE EVENT DATE: 20190219
